FAERS Safety Report 7014768-1 (Version None)
Quarter: 2010Q3

REPORT INFORMATION
  Report Type: 
  Country: None (occurrence: None)
  Receive Date: 20100927
  Receipt Date: 20100913
  Transmission Date: 20110219
  Serious: Yes (Hospitalization)
  Sender: FDA-Public Use
  Company Number: PHHY2010DE62724

PATIENT
  Age: 28 Year
  Sex: Female
  Weight: 75 kg

DRUGS (2)
  1. METHERGINE [Suspect]
     Dosage: 0.2 MG
  2. OXYTOCIN [Suspect]
     Dosage: 30 IE

REACTIONS (12)
  - BLOOD CREATINE PHOSPHOKINASE INCREASED [None]
  - BLOOD PRESSURE DECREASED [None]
  - BRAIN NATRIURETIC PEPTIDE INCREASED [None]
  - CHEST DISCOMFORT [None]
  - CHEST PAIN [None]
  - LEFT VENTRICULAR DYSFUNCTION [None]
  - LUNG CONSOLIDATION [None]
  - RALES [None]
  - SINUS TACHYCARDIA [None]
  - STRESS CARDIOMYOPATHY [None]
  - TROPONIN T INCREASED [None]
  - VENTRICULAR HYPOKINESIA [None]
